FAERS Safety Report 6415846-8 (Version None)
Quarter: 2009Q4

REPORT INFORMATION
  Report Type: 
  Country: None (occurrence: None)
  Receive Date: 20091023
  Receipt Date: 20091012
  Transmission Date: 20100525
  Serious: Yes (Hospitalization, Other)
  Sender: FDA-Public Use
  Company Number: 2009AL006613

PATIENT
  Age: 81 Year
  Sex: Female

DRUGS (26)
  1. AMLODIPINE BESYLATE [Suspect]
     Indication: DRUG USE FOR UNKNOWN INDICATION
     Dosage: 10 MG; PO
     Route: 048
     Dates: start: 20090914, end: 20090914
  2. LISINOPRIL [Concomitant]
  3. BLINDED STUDY MEDICATION [Concomitant]
  4. TYLOX [Concomitant]
  5. PROTAMINE SULFATE [Concomitant]
  6. SIMVASTATIN [Concomitant]
  7. SODIUM BICARBONATE IN PLASTIC CONTAINER [Concomitant]
  8. MIDAZOLAM HCL [Concomitant]
  9. CIPROFLOXACIN [Concomitant]
  10. ESCITALOPRAM [Concomitant]
  11. HYDROCHLOROTHIAZIDE [Concomitant]
  12. INSULIN GLARGINE [Concomitant]
  13. LISINOPRIL [Concomitant]
  14. CILOSTAZOL [Concomitant]
  15. ACETYLSALICYLIC ACID [Concomitant]
  16. CLOPIDOGREL [Concomitant]
  17. OXYCODONE [Concomitant]
  18. ROSUVASTATIN [Concomitant]
  19. LEVOTHYROXINE SODIUM [Concomitant]
  20. GLYCERYL TRINITRATE [Concomitant]
  21. PREDNISOLONE [Concomitant]
  22. ATENOLOL [Concomitant]
  23. FENTANYL-100 [Concomitant]
  24. HEPARIN SODIUM [Concomitant]
  25. NEBIVOLOL [Concomitant]
  26. GLYCERYL TRINITRATE [Concomitant]

REACTIONS (7)
  - COMPRESSION FRACTURE [None]
  - FALL [None]
  - LOSS OF CONSCIOUSNESS [None]
  - LUMBAR VERTEBRAL FRACTURE [None]
  - NAUSEA [None]
  - ORTHOSTATIC HYPOTENSION [None]
  - PRESYNCOPE [None]
